FAERS Safety Report 16898708 (Version 1)
Quarter: 2019Q4

REPORT INFORMATION
  Report Type: Spontaneous
  Country: US (occurrence: US)
  Receive Date: 20191009
  Receipt Date: 20191009
  Transmission Date: 20200122
  Serious: Yes (Other)
  Sender: FDA-Public Use
  Company Number: US-PFIZER INC-2019430375

PATIENT
  Age: 62 Year
  Sex: Female

DRUGS (7)
  1. IBRANCE [Suspect]
     Active Substance: PALBOCICLIB
     Indication: BREAST CANCER
     Dosage: 125 MG, CYCLIC (1 CAPSULE DAILY FOR 21 DAYS, THEN 7 DAYS OFF)
     Route: 048
     Dates: start: 201711
  2. TRIAMTERENE + HCTZ [Concomitant]
     Active Substance: HYDROCHLOROTHIAZIDE\TRIAMTERENE
     Dosage: UNK (37.5-25)
  3. VITAMIN B COMPLEX [Concomitant]
     Active Substance: CYANOCOBALAMIN\DEXPANTHENOL\NIACINAMIDE\PYRIDOXINE HYDROCHLORIDE\RIBOFLAVIN 5^-PHOSPHATE SODIUM\THIAMINE HYDROCHLORIDE\VITAMIN B COMPLEX
     Dosage: UNK
  4. IBRANCE [Suspect]
     Active Substance: PALBOCICLIB
     Dosage: REDUCED DOSE
  5. IBRANCE [Suspect]
     Active Substance: PALBOCICLIB
     Dosage: 125 MG, CYCLIC
  6. PANTOPRAZOLE SODIUM. [Concomitant]
     Active Substance: PANTOPRAZOLE SODIUM
     Dosage: 20 MG, UNK
  7. PROBIOTIC 10 [Concomitant]
     Active Substance: DIETARY SUPPLEMENT\PROBIOTICS

REACTIONS (4)
  - Diverticulitis [Unknown]
  - Anaemia [Unknown]
  - Fatigue [Unknown]
  - Blood count abnormal [Unknown]
